FAERS Safety Report 17006416 (Version 1)
Quarter: 2019Q4

REPORT INFORMATION
  Report Type: Spontaneous
  Country: US (occurrence: US)
  Receive Date: 20191106
  Receipt Date: 20191106
  Transmission Date: 20200122
  Serious: Yes (Other)
  Sender: FDA-Public Use
  Company Number: None

PATIENT
  Age: 68 Year
  Sex: Male
  Weight: 65.7 kg

DRUGS (2)
  1. GAMMAGARD [Suspect]
     Active Substance: HUMAN IMMUNOGLOBULIN G
     Indication: CORTICAL VISUAL IMPAIRMENT
     Dosage: ?          OTHER FREQUENCY:EVERY 4 WEEKS;?
     Route: 042
     Dates: start: 20191104, end: 20191104
  2. GAMMAGARD [Suspect]
     Active Substance: HUMAN IMMUNOGLOBULIN G
     Indication: CORTICAL VISUAL IMPAIRMENT
     Dosage: ?          OTHER FREQUENCY:EVERY 4 WEEKS;?
     Route: 042
     Dates: start: 20191104, end: 20191104

REACTIONS (2)
  - Productive cough [None]
  - Pyrexia [None]

NARRATIVE: CASE EVENT DATE: 20191104
